FAERS Safety Report 22222792 (Version 2)
Quarter: 2023Q2

REPORT INFORMATION
  Report Type: Spontaneous
  Country: CN (occurrence: CN)
  Receive Date: 20230418
  Receipt Date: 20230427
  Transmission Date: 20230721
  Serious: Yes (Other)
  Sender: FDA-Public Use
  Company Number: CN-Accord-308538

PATIENT
  Age: 68 Year
  Sex: Male

DRUGS (14)
  1. CISPLATIN [Suspect]
     Active Substance: CISPLATIN
     Indication: Prostate cancer metastatic
     Dosage: SYSTEMIC CHEMOTHERAPY
  2. DOCETAXEL [Suspect]
     Active Substance: DOCETAXEL
     Indication: Prostate cancer metastatic
     Dosage: SYSTEMIC CHEMOTHERAPY
  3. ABIRATERONE [Concomitant]
     Active Substance: ABIRATERONE
     Indication: Prostate cancer metastatic
     Dosage: CONTINUOUS
  4. ABIRATERONE [Concomitant]
     Active Substance: ABIRATERONE
     Indication: Metastases to penis
     Dosage: CONTINUOUS
  5. ABIRATERONE [Concomitant]
     Active Substance: ABIRATERONE
     Indication: Metastases to lung
     Dosage: CONTINUOUS
  6. ABIRATERONE [Concomitant]
     Active Substance: ABIRATERONE
     Indication: Metastases to bone
     Dosage: CONTINUOUS
  7. CISPLATIN [Suspect]
     Active Substance: CISPLATIN
     Indication: Metastases to bone
     Dosage: SYSTEMIC CHEMOTHERAPY
  8. DOCETAXEL [Suspect]
     Active Substance: DOCETAXEL
     Indication: Prostate cancer
     Dosage: SYSTEMIC CHEMOTHERAPY
  9. DOCETAXEL [Suspect]
     Active Substance: DOCETAXEL
     Indication: Metastases to penis
     Dosage: SYSTEMIC CHEMOTHERAPY
  10. DOCETAXEL [Suspect]
     Active Substance: DOCETAXEL
     Indication: Metastases to bone
     Dosage: SYSTEMIC CHEMOTHERAPY
  11. DOCETAXEL [Suspect]
     Active Substance: DOCETAXEL
     Indication: Metastases to lung
     Dosage: SYSTEMIC CHEMOTHERAPY
  12. CISPLATIN [Suspect]
     Active Substance: CISPLATIN
     Indication: Metastases to penis
     Dosage: SYSTEMIC CHEMOTHERAPY
  13. CISPLATIN [Suspect]
     Active Substance: CISPLATIN
     Indication: Prostate cancer
     Dosage: SYSTEMIC CHEMOTHERAPY
  14. CISPLATIN [Suspect]
     Active Substance: CISPLATIN
     Indication: Metastases to lung
     Dosage: SYSTEMIC CHEMOTHERAPY

REACTIONS (3)
  - Gastrointestinal disorder [Unknown]
  - Leukopenia [Unknown]
  - Alopecia [Unknown]
